FAERS Safety Report 20681160 (Version 1)
Quarter: 2022Q2

REPORT INFORMATION
  Report Type: Spontaneous
  Country: GB (occurrence: GB)
  Receive Date: 20220406
  Receipt Date: 20220406
  Transmission Date: 20220721
  Serious: Yes (Death, Other)
  Sender: FDA-Public Use
  Company Number: GB-JAZZ-2021-GB-019163

PATIENT
  Age: 69 Year
  Sex: Female

DRUGS (2)
  1. VYXEOS [Suspect]
     Active Substance: CYTARABINE\DAUNORUBICIN
     Dosage: DAUNORUBICIN 44 MG/M2 + CYTARABINE 100 MG/M2 ON DAYS 1, 3, AND 5
     Route: 042
  2. VYXEOS [Suspect]
     Active Substance: CYTARABINE\DAUNORUBICIN
     Dosage: DAUNORUBICIN 29 MG/M2 + CYTARABINE 65 MG/M2 ON DAYS 1 AND 3
     Route: 042

REACTIONS (3)
  - Death [Fatal]
  - Sepsis [Unknown]
  - COVID-19 [Unknown]
